FAERS Safety Report 12505545 (Version 1)
Quarter: 2016Q2

REPORT INFORMATION
  Report Type: Report from Study
  Country: CA (occurrence: CA)
  Receive Date: 20160628
  Receipt Date: 20160628
  Transmission Date: 20160815
  Serious: Yes (Other)
  Sender: FDA-Public Use
  Company Number: PHHY2016CA026471

PATIENT
  Age: 58 Year
  Sex: Female

DRUGS (9)
  1. EFFEXOR [Concomitant]
     Active Substance: VENLAFAXINE HYDROCHLORIDE
     Indication: PRODUCT USED FOR UNKNOWN INDICATION
     Route: 065
  2. COSENTYX [Suspect]
     Active Substance: SECUKINUMAB
     Indication: PSORIASIS
     Dosage: 300 MG, QMO
     Route: 058
     Dates: start: 20160218, end: 20160303
  3. ELTROXIN [Concomitant]
     Active Substance: LEVOTHYROXINE
     Indication: PRODUCT USED FOR UNKNOWN INDICATION
     Route: 065
  4. HYDROMORPHONE [Concomitant]
     Active Substance: HYDROMORPHONE
     Indication: PRODUCT USED FOR UNKNOWN INDICATION
     Dosage: 1 MG, UNK
     Route: 065
  5. TORADOL [Concomitant]
     Active Substance: KETOROLAC TROMETHAMINE
     Indication: PRODUCT USED FOR UNKNOWN INDICATION
     Dosage: UNK, PRN
     Route: 065
  6. NAPRELAN [Concomitant]
     Active Substance: NAPROXEN SODIUM
     Indication: PRODUCT USED FOR UNKNOWN INDICATION
     Route: 065
  7. COSENTYX [Suspect]
     Active Substance: SECUKINUMAB
     Indication: PSORIATIC ARTHROPATHY
  8. OMEPRAZOLE. [Concomitant]
     Active Substance: OMEPRAZOLE
     Indication: PRODUCT USED FOR UNKNOWN INDICATION
     Route: 065
  9. HYDROMORPH CONTIN [Concomitant]
     Active Substance: HYDROMORPHONE
     Indication: PRODUCT USED FOR UNKNOWN INDICATION
     Dosage: UNK MG, UNK
     Route: 065

REACTIONS (20)
  - Arthralgia [Not Recovered/Not Resolved]
  - Asthenia [Unknown]
  - Cough [Unknown]
  - Drug ineffective [Unknown]
  - Dizziness [Unknown]
  - Neck pain [Unknown]
  - Hypersomnia [Unknown]
  - Hypoaesthesia [Unknown]
  - Pain [Not Recovered/Not Resolved]
  - Rash [Unknown]
  - Malaise [Unknown]
  - Back pain [Unknown]
  - Migraine [Not Recovered/Not Resolved]
  - Psoriasis [Not Recovered/Not Resolved]
  - Lung infection [Unknown]
  - Lower respiratory tract infection [Recovered/Resolved]
  - Oropharyngeal pain [Unknown]
  - Feeling abnormal [Unknown]
  - Nasopharyngitis [Recovering/Resolving]
  - Speech disorder [Recovered/Resolved]

NARRATIVE: CASE EVENT DATE: 20160218
